FAERS Safety Report 5370839-7 (Version None)
Quarter: 2007Q2

REPORT INFORMATION
  Report Type: 
  Country: None (occurrence: None)
  Receive Date: 20070626
  Receipt Date: 20070622
  Transmission Date: 20071010
  Serious: Yes (Hospitalization)
  Sender: FDA-Public Use
  Company Number: JP-BRISTOL-MYERS SQUIBB COMPANY-12942843

PATIENT
  Age: 50 Year
  Sex: Male

DRUGS (8)
  1. VIDEX EC [Suspect]
     Indication: HIV INFECTION
     Route: 048
     Dates: start: 20010906, end: 20050201
  2. ZERIT [Suspect]
     Indication: HIV INFECTION
     Dosage: STARTED ON 06-SEP-2001 AT 80 MG THEN DOSAGE DECREASED TO 60 MG PER DAY ON 05-JUL-2004.
     Route: 048
     Dates: start: 20010906, end: 20050201
  3. VIRACEPT [Suspect]
     Indication: HIV INFECTION
     Route: 048
     Dates: start: 20010906, end: 20041206
  4. RECOMBINATE [Concomitant]
     Route: 042
     Dates: start: 20020401, end: 20050331
  5. MONILAC [Concomitant]
     Route: 048
     Dates: start: 20030401, end: 20050424
  6. EPIVIR [Concomitant]
     Route: 048
     Dates: start: 20050307
  7. STOCRIN [Concomitant]
     Route: 048
     Dates: start: 20050411
  8. VIREAD [Concomitant]
     Route: 048
     Dates: start: 20050401

REACTIONS (6)
  - CEREBELLAR HAEMORRHAGE [None]
  - DRUG TOXICITY [None]
  - HEPATIC ENCEPHALOPATHY [None]
  - HYPERAMMONAEMIA [None]
  - HYPERTENSION [None]
  - LUMBAR VERTEBRAL FRACTURE [None]
